FAERS Safety Report 20093261 (Version 1)
Quarter: 2021Q4

REPORT INFORMATION
  Report Type: Spontaneous
  Country: US (occurrence: US)
  Receive Date: 20211120
  Receipt Date: 20211120
  Transmission Date: 20220303
  Serious: No
  Sender: FDA-Public Use
  Company Number: US-APOTEX-2021AP045222

PATIENT
  Age: 73 Year
  Sex: Male

DRUGS (3)
  1. TEMOZOLOMIDE [Suspect]
     Active Substance: TEMOZOLOMIDE
     Indication: T-cell lymphoma
     Dosage: 300 MILLIGRAM (DAYS 1-5 OF 28-DAY CYCLES)
     Route: 065
  2. TEMOZOLOMIDE [Suspect]
     Active Substance: TEMOZOLOMIDE
     Indication: Central nervous system lymphoma
  3. DEXAMETHASONE [Concomitant]
     Active Substance: DEXAMETHASONE
     Indication: Symptomatic treatment
     Dosage: 2 MILLIGRAM, BID
     Route: 065

REACTIONS (2)
  - Constipation [Unknown]
  - Fatigue [Unknown]
